FAERS Safety Report 9737427 (Version 4)
Quarter: 2014Q1

REPORT INFORMATION
  Report Type: Spontaneous
  Country: US (occurrence: US)
  Receive Date: 20131206
  Receipt Date: 20140206
  Transmission Date: 20141002
  Serious: Yes (Hospitalization, Other)
  Sender: FDA-Public Use
  Company Number: US-GILEAD-2013-0089371

PATIENT
  Sex: Female

DRUGS (2)
  1. LETAIRIS [Suspect]
     Indication: PULMONARY HYPERTENSION
     Dosage: 10 MG, UNK
     Route: 048
     Dates: start: 20120522
  2. LETAIRIS [Suspect]
     Indication: COLLAGEN-VASCULAR DISEASE
     Dates: start: 20120522

REACTIONS (2)
  - Pneumonia [Unknown]
  - Malaise [Unknown]
